FAERS Safety Report 21491170 (Version 1)
Quarter: 2022Q4

REPORT INFORMATION
  Report Type: Spontaneous
  Country: RU (occurrence: RU)
  Receive Date: 20221021
  Receipt Date: 20221021
  Transmission Date: 20230112
  Serious: Yes (Other)
  Sender: FDA-Public Use
  Company Number: RU-NOVARTISPH-NVSC2022RU234890

PATIENT
  Age: 14 Year
  Sex: Female
  Weight: 52 kg

DRUGS (3)
  1. TRILEPTAL [Suspect]
     Active Substance: OXCARBAZEPINE
     Indication: Epilepsy
     Dosage: UNK (? TABLET IN MORNING AND 1 TABLET IN EVENING (ALSO REPORTED AS FROM 300 MG TO 600 MG/900 MG)
     Route: 048
     Dates: start: 20200507
  2. KEPPRA [Concomitant]
     Active Substance: LEVETIRACETAM
     Indication: Epilepsy
     Dosage: UNK (ADMINISTERED MEDICATIONS IN THE LAST 3 MONTHS)
     Route: 048
     Dates: start: 20190813
  3. KEPPRA [Concomitant]
     Active Substance: LEVETIRACETAM
     Dosage: UNK (750 MG/ 500 MG) 750 MG IN THE MORNING AND 500 MG IN EVENING)
     Route: 065

REACTIONS (5)
  - Aggression [Recovering/Resolving]
  - Depressed mood [Recovering/Resolving]
  - Headache [Recovering/Resolving]
  - Drug ineffective [Recovering/Resolving]
  - Psychomotor hyperactivity [Unknown]

NARRATIVE: CASE EVENT DATE: 20201101
